FAERS Safety Report 6051192-2 (Version None)
Quarter: 2009Q1

REPORT INFORMATION
  Report Type: 
  Country: None (occurrence: None)
  Receive Date: 20090121
  Receipt Date: 20090108
  Transmission Date: 20090719
  Serious: Yes (Hospitalization)
  Sender: FDA-Public Use
  Company Number: ADR0122009

PATIENT
  Age: 80 Year
  Sex: Female

DRUGS (8)
  1. CITALOPRAM HYDROBROMIDE [Suspect]
     Indication: ANXIETY
     Dosage: 10 MG - 20 MG QD
     Dates: start: 20060201
  2. PROPAFENONE HCL [Concomitant]
  3. DIGOXIN [Concomitant]
  4. ISOSORBIDE DINITRATE [Concomitant]
  5. SPIRONOLACTONE/HYDROCHLOROTHIAZIDE [Concomitant]
  6. SIMVASTATIN [Concomitant]
  7. ACETYLSALICYLIC ACID SRT [Concomitant]
  8. .. [Concomitant]

REACTIONS (9)
  - ATRIAL FIBRILLATION [None]
  - CHEST DISCOMFORT [None]
  - CONTUSION [None]
  - DIZZINESS [None]
  - DRUG INTERACTION [None]
  - DRUG LEVEL BELOW THERAPEUTIC [None]
  - FALL [None]
  - MENTAL STATUS CHANGES [None]
  - NO THERAPEUTIC RESPONSE [None]
